FAERS Safety Report 11593281 (Version 1)
Quarter: 2015Q4

REPORT INFORMATION
  Report Type: Spontaneous
  Country: US (occurrence: None)
  Receive Date: 20151002
  Receipt Date: 20151002
  Transmission Date: 20160304
  Serious: Yes (Life-Threatening, Hospitalization)
  Sender: FDA-Public Use
  Company Number: None

PATIENT
  Age: 64 Year
  Sex: Female
  Weight: 53.98 kg

DRUGS (5)
  1. TRAMADOL. [Concomitant]
     Active Substance: TRAMADOL
  2. LISINOPRIL. [Suspect]
     Active Substance: LISINOPRIL
     Indication: HYPERTENSION
     Dosage: 1 PILL
     Route: 048
     Dates: start: 2010, end: 20150309
  3. SIMVASTATIN. [Concomitant]
     Active Substance: SIMVASTATIN
  4. SYNTHROID [Concomitant]
     Active Substance: LEVOTHYROXINE SODIUM
  5. PREVASCAN [Concomitant]

REACTIONS (4)
  - Throat tightness [None]
  - Pharyngeal oedema [None]
  - Speech disorder [None]
  - No reaction on previous exposure to drug [None]

NARRATIVE: CASE EVENT DATE: 20150909
